FAERS Safety Report 5677814-3 (Version None)
Quarter: 2008Q1

REPORT INFORMATION
  Report Type: 
  Country: None (occurrence: None)
  Receive Date: 20080318
  Receipt Date: 20080304
  Transmission Date: 20080703
  Serious: Yes (Hospitalization)
  Sender: FDA-Public Use
  Company Number: 2008000476

PATIENT
  Age: 75 Year
  Sex: Male

DRUGS (8)
  1. ERLOTINIB (ERLOTINIG HCL) (TABLET) (ERLOTINIG HCL) [Suspect]
     Indication: HEPATOBLASTOMA
     Dosage: 150 MG QD ORAL
     Route: 048
     Dates: start: 20071101, end: 20080216
  2. BEVACIZUMAB (INJECTION FOR INFUSION) [Suspect]
     Dosage: 10 MG/K2, Q2W), INTRAVENOUS
     Route: 042
     Dates: start: 20071101, end: 20080206
  3. LOVENOX [Concomitant]
  4. DEXAMETHASONE TAB [Concomitant]
  5. GLIPIZIDE [Concomitant]
  6. SIMVASTATIN [Concomitant]
  7. NADOLOL [Concomitant]
  8. OXYBUTYNIN CHLORIDE [Concomitant]

REACTIONS (11)
  - ACTIVATED PARTIAL THROMBOPLASTIN TIME PROLONGED [None]
  - ANAEMIA [None]
  - BLOOD BLISTER [None]
  - FIBRIN D DIMER INCREASED [None]
  - HAEMATOMA [None]
  - MASS [None]
  - METASTASIS [None]
  - PROTHROMBIN TIME PROLONGED [None]
  - SARCOMA [None]
  - SKIN DISCOLOURATION [None]
  - THROMBOCYTOPENIA [None]
